FAERS Safety Report 4664475-5 (Version None)
Quarter: 2005Q2

REPORT INFORMATION
  Report Type: 
  Country: None (occurrence: None)
  Receive Date: 20050518
  Receipt Date: 20050506
  Transmission Date: 20051028
  Serious: Yes (Other)
  Sender: FDA-Public Use
  Company Number: US-BRISTOL-MYERS SQUIBB COMPANY-12959037

PATIENT
  Sex: Male

DRUGS (3)
  1. REYATAZ [Suspect]
  2. RITONAVIR [Suspect]
  3. TENOFOVIR [Concomitant]

REACTIONS (1)
  - LYMPHOPENIA [None]
